FAERS Safety Report 4921561-X (Version None)
Quarter: 2006Q1

REPORT INFORMATION
  Report Type: 
  Country: None (occurrence: None)
  Receive Date: 20060222
  Receipt Date: 20060222
  Transmission Date: 20060701
  Serious: Yes (Other)
  Sender: FDA-Public Use
  Company Number: None

PATIENT
  Sex: Male
  Weight: 259.6 kg

DRUGS (18)
  1. METHYLCELLULOSE (METHYLCELLULOSE) [Suspect]
     Indication: CONSTIPATION
     Dosage: ORAL
     Route: 048
     Dates: start: 20050801, end: 20050801
  2. ATORVASTATIN CALCIUM [Concomitant]
  3. ENALAPRIL MALEATE [Concomitant]
  4. ATENOLOL [Concomitant]
  5. CELECOXIB [Concomitant]
  6. CENTRUM SILVER [Concomitant]
  7. ASPIRIN [Concomitant]
  8. CARISOPRODOL [Concomitant]
  9. RANITIDINE HYDROCHLORIDE [Concomitant]
  10. RABEPRAZOLE SODIUM [Concomitant]
  11. TRAZODONE [Concomitant]
  12. TRAMADOL HCL [Concomitant]
  13. FEXOFENADINE HYDROCHLORID [Concomitant]
  14. SALBUTAMOL SULPHATE [Concomitant]
  15. TEMAZEPAM [Concomitant]
  16. EZETIMIBE [Concomitant]
  17. ACETAMINOPHEN [Concomitant]
  18. MECHANICAL VENTILATION [Concomitant]

REACTIONS (4)
  - CONDITION AGGRAVATED [None]
  - CONSTIPATION [None]
  - INTESTINAL FUNCTIONAL DISORDER [None]
  - RECTAL HAEMORRHAGE [None]
